FAERS Safety Report 14189492 (Version 1)
Quarter: 2017Q4

REPORT INFORMATION
  Report Type: Spontaneous
  Country: FR (occurrence: FR)
  Receive Date: 20171115
  Receipt Date: 20171115
  Transmission Date: 20180321
  Serious: Yes (Other)
  Sender: FDA-Public Use
  Company Number: FR-MERCK KGAA-2034111

PATIENT
  Sex: Female

DRUGS (2)
  1. NOVOTHYROX [Suspect]
     Active Substance: LEVOTHYROXINE SODIUM
     Indication: PRODUCT USED FOR UNKNOWN INDICATION
  2. LEVOTHYROX [Suspect]
     Active Substance: LEVOTHYROXINE

REACTIONS (11)
  - Headache [None]
  - Insomnia [None]
  - Hyperthyroidism [None]
  - Blood thyroid stimulating hormone increased [None]
  - Hyperhidrosis [None]
  - Hypothyroidism [None]
  - Tremor [None]
  - Disturbance in attention [None]
  - Loss of personal independence in daily activities [None]
  - Malaise [None]
  - Gastrointestinal disorder [None]
